FAERS Safety Report 18141801 (Version 1)
Quarter: 2020Q3

REPORT INFORMATION
  Report Type: Spontaneous
  Country: US (occurrence: US)
  Receive Date: 20200812
  Receipt Date: 20200812
  Transmission Date: 20201103
  Serious: Yes (Hospitalization)
  Sender: FDA-Public Use
  Company Number: US-FRESENIUS MEDICAL CARE RENAL THERAPIES GROUP-FMC-2007-000865

PATIENT
  Age: 53 Year
  Sex: Male
  Weight: 124 kg

DRUGS (20)
  1. CALCITRIOL. [Concomitant]
     Active Substance: CALCITRIOL
  2. ISOSORBIDE. [Concomitant]
     Active Substance: ISOSORBIDE
  3. DELFLEX WITH DEXTROSE 1.5% LOW MAGNESIUM LOW CALCIUM [Suspect]
     Active Substance: CALCIUM CHLORIDE\DEXTROSE\MAGNESIUM CHLORIDE\SODIUM CHLORIDE\SODIUM LACTATE
     Indication: END STAGE RENAL DISEASE
     Dosage: TOTAL FILL VOLUME 19,500 ML, FILL VOLUME 3500 ML, 5 EXCHANGES, LAST FILL 2000 ML ICODEXTRIN, NO DAYT
     Route: 033
  4. HUMALOG [Concomitant]
     Active Substance: INSULIN LISPRO
  5. DIOVAN [Concomitant]
     Active Substance: VALSARTAN
  6. LIPITOR [Concomitant]
     Active Substance: ATORVASTATIN CALCIUM
  7. NEPHRO VITE [Concomitant]
  8. DELFLEX WITH DEXTROSE 2.5% LOW MAGNESIUM LOW CALCIUM [Suspect]
     Active Substance: CALCIUM CHLORIDE\DEXTROSE\MAGNESIUM CHLORIDE\SODIUM CHLORIDE\SODIUM LACTATE
     Indication: END STAGE RENAL DISEASE
     Dosage: TOTAL FILL VOLUME 19,500 ML, FILL VOLUME 3500 ML, 5 EXCHANGES, LAST FILL 2000 ML ICODEXTRIN, NO DAYT
     Route: 033
  9. ICODEXTRIN [Suspect]
     Active Substance: ICODEXTRIN
     Indication: END STAGE RENAL DISEASE
  10. WELLBUTRIN [Concomitant]
     Active Substance: BUPROPION HYDROCHLORIDE
  11. KLOR?CON [Concomitant]
     Active Substance: POTASSIUM CHLORIDE
  12. LINZESS [Concomitant]
     Active Substance: LINACLOTIDE
  13. NEURONTIN [Concomitant]
     Active Substance: GABAPENTIN
  14. TUMS [Concomitant]
     Active Substance: CALCIUM CARBONATE
  15. DELFLEX WITH DEXTROSE 4.25% LOW MAGNESIUM LOW CALCIUM [Suspect]
     Active Substance: CALCIUM CHLORIDE\DEXTROSE\MAGNESIUM CHLORIDE\SODIUM CHLORIDE\SODIUM LACTATE
     Indication: END STAGE RENAL DISEASE
     Dosage: TOTAL FILL VOLUME 19,500 ML, FILL VOLUME 3500 ML, 5 EXCHANGES, LAST FILL 2000 ML ICODEXTRIN, NO DAYT
     Route: 033
  16. CALCIUM ACETATE. [Concomitant]
     Active Substance: CALCIUM ACETATE
  17. LASIX [Concomitant]
     Active Substance: FUROSEMIDE
  18. MIRALAX [Concomitant]
     Active Substance: POLYETHYLENE GLYCOL 3350
  19. NORVASC [Concomitant]
     Active Substance: AMLODIPINE BESYLATE
  20. ZOFRAN [Concomitant]
     Active Substance: ONDANSETRON HYDROCHLORIDE

REACTIONS (2)
  - Peritonitis bacterial [Recovering/Resolving]
  - Abdominal pain [Unknown]
